FAERS Safety Report 9460827 (Version 1)
Quarter: 2013Q3

REPORT INFORMATION
  Report Type: Spontaneous
  Country: US (occurrence: US)
  Receive Date: 20130815
  Receipt Date: 20130815
  Transmission Date: 20140515
  Serious: No
  Sender: FDA-Public Use
  Company Number: US-009507513-1308USA004600

PATIENT
  Age: 25 Year
  Sex: Female

DRUGS (3)
  1. PROVENTIL [Suspect]
     Indication: ASTHMA
     Dosage: ROUTE: ORAL INHALATION, PRN
     Route: 055
  2. LEVEMIR [Concomitant]
  3. APIDRA [Concomitant]

REACTIONS (4)
  - Dyspnoea [Recovered/Resolved]
  - Product quality issue [Unknown]
  - Product taste abnormal [Unknown]
  - Drug dose omission [Unknown]
